FAERS Safety Report 4567756-9 (Version None)
Quarter: 2005Q1

REPORT INFORMATION
  Report Type: 
  Country: None (occurrence: None)
  Receive Date: 20050127
  Receipt Date: 20050113
  Transmission Date: 20050727
  Serious: Yes (Hospitalization, Other)
  Sender: FDA-Public Use
  Company Number: 2005012155

PATIENT
  Age: 61 Year
  Sex: Female

DRUGS (5)
  1. TRANEXAMIC ACID (TRANEXAMIC ACID) (TRANEXAMIC ACID) [Suspect]
     Indication: ILL-DEFINED DISORDER
     Dosage: UNKNOWN
     Route: 065
  2. CEFAZOLIN SODIUM [Suspect]
     Indication: ILL-DEFINED DISORDER
     Dosage: UNKNOWN
     Route: 065
  3. MENATETRENONE (MENATETRENONE) [Suspect]
     Indication: ILL-DEFINED DISORDER
     Dosage: UNKNOWN
     Route: 065
  4. CARBAZOCHROME SODIUM SULFONATE (CARBAZOCHROME SODIUM SULFONATE) [Suspect]
     Indication: ILL-DEFINED DISORDER
     Dosage: UNKNOWN
     Route: 065
  5. LORMETAZEPAM (LORMETAZEPAM) [Suspect]
     Indication: ILL-DEFINED DISORDER
     Dosage: UNKNOWN
     Route: 065

REACTIONS (3)
  - HEPATIC NEOPLASM MALIGNANT [None]
  - HEPATITIS C [None]
  - HEPATOTOXICITY [None]
